FAERS Safety Report 8127932 (Version 8)
Quarter: 2012Q4

REPORT INFORMATION
  Report Type: 
  Country: AU (occurrence: AU)
  Receive Date: 20110909
  Receipt Date: 20120923
  Transmission Date: 20130627
  Serious: Yes (Other)
  Sender: FDA-Public Use
  Company Number: AU-BIOGENIDEC-2011BI033961

PATIENT
  Age: 42 Year
  Sex: Female

DRUGS (4)
  1. TYSABRI [Suspect]
     Indication: MULTIPLE SCLEROSIS
     Route: 042
     Dates: start: 20100819, end: 20110624
  2. VITAMIN D [Concomitant]
  3. VITAMIN B [Concomitant]
  4. FISH OIL [Concomitant]

REACTIONS (1)
  - Breast cancer [Unknown]
